FAERS Safety Report 4435264-1 (Version None)
Quarter: 2004Q3

REPORT INFORMATION
  Report Type: 
  Country: None (occurrence: None)
  Receive Date: 20040827
  Receipt Date: 20040614
  Transmission Date: 20050211
  Serious: Yes (Death)
  Sender: FDA-Public Use
  Company Number: US-AMGEN-US080462

PATIENT
  Sex: Male
  Weight: 77.2 kg

DRUGS (5)
  1. PROCRIT [Suspect]
     Indication: MYELODYSPLASTIC SYNDROME
     Route: 058
     Dates: start: 20011001, end: 20021101
  2. CELEBREX [Concomitant]
  3. MINOCYCLINE HCL [Concomitant]
  4. PROZAC [Concomitant]
  5. PREDNISONE [Concomitant]

REACTIONS (1)
  - ACUTE LEUKAEMIA [None]
